FAERS Safety Report 15755591 (Version 2)
Quarter: 2018Q4

REPORT INFORMATION
  Report Type: Report from Study
  Country: US (occurrence: US)
  Receive Date: 20181224
  Receipt Date: 20181230
  Transmission Date: 20190205
  Serious: No
  Sender: FDA-Public Use
  Company Number: PHEH2018US052988

PATIENT
  Sex: Female

DRUGS (3)
  1. RITALIN [Suspect]
     Active Substance: METHYLPHENIDATE HYDROCHLORIDE
     Dosage: 10 MG, UNK
     Route: 065
  2. RITALIN [Suspect]
     Active Substance: METHYLPHENIDATE HYDROCHLORIDE
     Indication: DEPRESSION SUICIDAL
     Dosage: UNK
     Route: 065
     Dates: start: 2004
  3. RITALIN [Suspect]
     Active Substance: METHYLPHENIDATE HYDROCHLORIDE
     Dosage: 20 MG, UNK
     Route: 065
     Dates: start: 2004

REACTIONS (5)
  - Anxiety [Unknown]
  - Attention deficit/hyperactivity disorder [Unknown]
  - Post-traumatic stress disorder [Recovered/Resolved]
  - Headache [Recovering/Resolving]
  - Product use in unapproved indication [Unknown]
